FAERS Safety Report 4506072-8 (Version None)
Quarter: 2004Q4

REPORT INFORMATION
  Report Type: 
  Country: None (occurrence: None)
  Receive Date: 20041119
  Receipt Date: 20040901
  Transmission Date: 20050328
  Serious: Yes (Death)
  Sender: FDA-Public Use
  Company Number: PHEH2004US09501

PATIENT
  Age: 74 Year
  Sex: Male

DRUGS (5)
  1. CLOZARIL [Suspect]
     Dosage: UNK, UNK
     Route: 048
     Dates: end: 20040822
  2. DITROPAN [Concomitant]
  3. COLACE [Concomitant]
  4. TYLENOL [Concomitant]
  5. CINNAMINT [Concomitant]

REACTIONS (3)
  - BRAIN NEOPLASM [None]
  - PARKINSON'S DISEASE [None]
  - PNEUMONIA ASPIRATION [None]
